FAERS Safety Report 5396737-0 (Version None)
Quarter: 2007Q3

REPORT INFORMATION
  Report Type: 
  Country: None (occurrence: None)
  Receive Date: 20070725
  Receipt Date: 20070716
  Transmission Date: 20080115
  Serious: Yes (Hospitalization)
  Sender: FDA-Public Use
  Company Number: AU-GENENTECH-244592

PATIENT
  Sex: Male
  Weight: 96.5 kg

DRUGS (5)
  1. RITUXAN [Suspect]
     Indication: B-CELL LYMPHOMA
     Dosage: 800 MG, UNK
     Route: 042
     Dates: start: 20060504
  2. CYCLOPHOSPHAMIDE [Suspect]
     Indication: B-CELL LYMPHOMA
     Dosage: 1600 MG, UNK
     Route: 042
     Dates: start: 20060504
  3. VINCRISTINE [Suspect]
     Indication: B-CELL LYMPHOMA
     Dosage: 2 MG, UNK
     Route: 042
     Dates: start: 20060504
  4. DOXORUBICIN HCL [Suspect]
     Indication: B-CELL LYMPHOMA
     Dosage: 106 MG, UNK
     Route: 042
     Dates: start: 20060504
  5. PREDNISOLONE [Suspect]
     Indication: B-CELL LYMPHOMA
     Dosage: 100 MG, UNK
     Route: 048
     Dates: start: 20060504

REACTIONS (1)
  - ASTHMA [None]
